FAERS Safety Report 10965632 (Version 2)
Quarter: 2015Q2

REPORT INFORMATION
  Report Type: Spontaneous
  Country: US (occurrence: US)
  Receive Date: 20150330
  Receipt Date: 20150423
  Transmission Date: 20150821
  Serious: Yes (Other)
  Sender: FDA-Public Use
  Company Number: US-009507513-1503USA012685

PATIENT
  Age: 77 Year
  Sex: Female

DRUGS (4)
  1. LYRICA [Concomitant]
     Active Substance: PREGABALIN
     Dosage: 150 MG, BID
     Route: 048
  2. LIPITOR [Concomitant]
     Active Substance: ATORVASTATIN CALCIUM
     Dosage: UNK
  3. PRINIVIL [Suspect]
     Active Substance: LISINOPRIL
     Dosage: 20 MG, HS
     Route: 048
     Dates: end: 20150125
  4. LIPITOR [Concomitant]
     Active Substance: ATORVASTATIN CALCIUM
     Dosage: 20 MG, HS
     Route: 048

REACTIONS (7)
  - Hypothyroidism [Unknown]
  - Aortic arteriosclerosis [Unknown]
  - Rash [Unknown]
  - Pain [Unknown]
  - Essential hypertension [Unknown]
  - Hypertensive crisis [Unknown]
  - Hyperlipidaemia [Unknown]

NARRATIVE: CASE EVENT DATE: 2015
